FAERS Safety Report 5372975-8 (Version None)
Quarter: 2007Q2

REPORT INFORMATION
  Report Type: 
  Country: None (occurrence: None)
  Receive Date: 20070619
  Receipt Date: 20070305
  Transmission Date: 20071010
  Serious: No
  Sender: FDA-Public Use
  Company Number: 2007US000566

PATIENT
  Age: 70 Year
  Sex: Female

DRUGS (2)
  1. VESICARE [Suspect]
     Indication: DRUG USE FOR UNKNOWN INDICATION
     Dosage: 10 MG
     Dates: start: 20070201
  2. COUMADIN [Concomitant]

REACTIONS (4)
  - COAGULATION TIME PROLONGED [None]
  - CONSTIPATION [None]
  - DRY MOUTH [None]
  - VISION BLURRED [None]
